FAERS Safety Report 7860754-9 (Version None)
Quarter: 2011Q4

REPORT INFORMATION
  Report Type: 
  Country: None (occurrence: None)
  Receive Date: 20111027
  Receipt Date: 20111012
  Transmission Date: 20120403
  Serious: Yes (Hospitalization)
  Sender: FDA-Public Use
  Company Number: US-BAYER-2011-020081

PATIENT
  Age: 45 Year
  Sex: Female
  Weight: 66.667 kg

DRUGS (1)
  1. YAZ [Suspect]
     Indication: ACNE

REACTIONS (4)
  - PULMONARY EMBOLISM [None]
  - PAIN [None]
  - DEEP VEIN THROMBOSIS [None]
  - THROMBOSIS [None]
